FAERS Safety Report 24236591 (Version 1)
Quarter: 2024Q3

REPORT INFORMATION
  Report Type: Spontaneous
  Country: CN (occurrence: CN)
  Receive Date: 20240822
  Receipt Date: 20240822
  Transmission Date: 20241017
  Serious: Yes (Other)
  Sender: BEIGENE
  Company Number: CN-BEIGENE-BGN-2024-012824

PATIENT

DRUGS (5)
  1. TISLELIZUMAB [Suspect]
     Active Substance: TISLELIZUMAB
     Indication: Oesophageal carcinoma
     Dosage: 20 MILLILITER
     Route: 041
     Dates: start: 20240614
  2. GIMERACIL\OTERACIL\TEGAFUR [Suspect]
     Active Substance: GIMERACIL\OTERACIL POTASSIUM\TEGAFUR
     Indication: Oesophageal carcinoma
     Dosage: 50 MILLIGRAM, BID
     Route: 048
     Dates: start: 20240614
  3. NEDAPLATIN [Suspect]
     Active Substance: NEDAPLATIN
     Indication: Oesophageal carcinoma
     Dosage: 100 MILLIGRAM
     Route: 041
     Dates: start: 20240614
  4. SODIUM CHLORIDE [Concomitant]
     Active Substance: SODIUM CHLORIDE
     Indication: Vehicle solution use
     Dosage: 100 MILLILITER
     Route: 041
     Dates: start: 20240614, end: 20240614
  5. SODIUM CHLORIDE [Concomitant]
     Active Substance: SODIUM CHLORIDE
     Dosage: 400 MILLILITER
     Route: 041
     Dates: start: 20240614, end: 20240614

REACTIONS (1)
  - Bicytopenia [Recovering/Resolving]

NARRATIVE: CASE EVENT DATE: 20240705
